FAERS Safety Report 12528969 (Version 4)
Quarter: 2019Q3

REPORT INFORMATION
  Report Type: Spontaneous
  Country: JP (occurrence: JP)
  Receive Date: 20160705
  Receipt Date: 20190816
  Transmission Date: 20191004
  Serious: Yes (Death, Other)
  Sender: FDA-Public Use
  Company Number: JP-BRISTOL-MYERS SQUIBB COMPANY-BMS-2016-054146

PATIENT
  Age: 69 Year
  Sex: Male
  Weight: 43.3 kg

DRUGS (3)
  1. OPDIVO [Suspect]
     Active Substance: NIVOLUMAB
     Indication: NON-SMALL CELL LUNG CANCER RECURRENT
     Dosage: 140 MG, UNK
     Route: 041
     Dates: start: 20160602, end: 20160602
  2. NAIXAN                             /00256201/ [Suspect]
     Active Substance: NAPROXEN
     Indication: PYREXIA
     Dosage: UNK UNK, Q8H
     Route: 048
  3. OPDIVO [Suspect]
     Active Substance: NIVOLUMAB
     Indication: PRODUCT USED FOR UNKNOWN INDICATION
     Dosage: 140 MG, UNK
     Route: 041
     Dates: start: 20160615, end: 20160615

REACTIONS (2)
  - Acute kidney injury [Fatal]
  - Liver disorder [Unknown]

NARRATIVE: CASE EVENT DATE: 20160621
